FAERS Safety Report 6637244-4 (Version None)
Quarter: 2010Q1

REPORT INFORMATION
  Report Type: 
  Country: None (occurrence: None)
  Receive Date: 20100316
  Receipt Date: 20091209
  Transmission Date: 20100710
  Serious: No
  Sender: FDA-Public Use
  Company Number: US-ABBOTT-09P-163-0614232-00

PATIENT
  Sex: Male
  Weight: 90.8 kg

DRUGS (4)
  1. TRILIPIX [Suspect]
     Indication: BLOOD TRIGLYCERIDES INCREASED
     Dates: start: 20091101
  2. NORVASC [Concomitant]
     Indication: DRUG USE FOR UNKNOWN INDICATION
  3. AVODART [Concomitant]
     Indication: DRUG USE FOR UNKNOWN INDICATION
  4. GLUCOTROL [Concomitant]
     Indication: DIABETES MELLITUS

REACTIONS (2)
  - ACTIVATED PARTIAL THROMBOPLASTIN TIME PROLONGED [None]
  - INTERNATIONAL NORMALISED RATIO INCREASED [None]
